FAERS Safety Report 9916241 (Version 1)
Quarter: 2014Q1

REPORT INFORMATION
  Report Type: Spontaneous
  Country: GB (occurrence: GB)
  Receive Date: 20140221
  Receipt Date: 20140221
  Transmission Date: 20141002
  Serious: Yes (Other)
  Sender: FDA-Public Use
  Company Number: GB-TEVA-463261ISR

PATIENT
  Age: 6 Decade
  Sex: Male
  Weight: 76.2 kg

DRUGS (2)
  1. LORATADINE [Suspect]
     Indication: SEASONAL ALLERGY
     Route: 048
     Dates: start: 20130710, end: 20130714
  2. DOXAZOSIN [Concomitant]

REACTIONS (1)
  - Abdominal pain upper [Recovered/Resolved]
